FAERS Safety Report 5637847-X (Version None)
Quarter: 2008Q1

REPORT INFORMATION
  Report Type: 
  Country: None (occurrence: None)
  Receive Date: 20080220
  Receipt Date: 20080214
  Transmission Date: 20080703
  Serious: Yes (Death)
  Sender: FDA-Public Use
  Company Number: 2008US000515

PATIENT
  Age: 28 Year
  Sex: Female

DRUGS (1)
  1. PROGRAF [Suspect]
     Indication: HEART TRANSPLANT

REACTIONS (3)
  - HEART TRANSPLANT REJECTION [None]
  - LEFT VENTRICULAR FAILURE [None]
  - RIGHT VENTRICULAR FAILURE [None]
